FAERS Safety Report 13107064 (Version 1)
Quarter: 2017Q1

REPORT INFORMATION
  Report Type: Spontaneous
  Country: SG (occurrence: SG)
  Receive Date: 20170111
  Receipt Date: 20170111
  Transmission Date: 20170428
  Serious: Yes (Other)
  Sender: FDA-Public Use
  Company Number: SG-BAXTER-2017BAX000458

PATIENT
  Age: 52 Year
  Sex: Male

DRUGS (6)
  1. DEXTROSE. [Concomitant]
     Active Substance: DEXTROSE
     Indication: FLUID REPLACEMENT
     Route: 065
  2. HALOPERIDOL. [Concomitant]
     Active Substance: HALOPERIDOL
     Indication: BIPOLAR DISORDER
     Route: 065
  3. SODIUM CHLORIDE INJECTION USP 0.9% [Suspect]
     Active Substance: SODIUM CHLORIDE
     Indication: FLUID REPLACEMENT
     Route: 042
  4. SODIUM CHLORIDE INJECTION USP 0.9% [Suspect]
     Active Substance: SODIUM CHLORIDE
     Route: 065
  5. DESMOPRESSIN [Concomitant]
     Active Substance: DESMOPRESSIN
     Indication: NEPHROGENIC DIABETES INSIPIDUS
     Route: 042
  6. LITHIUM. [Concomitant]
     Active Substance: LITHIUM
     Indication: BIPOLAR DISORDER
     Route: 065

REACTIONS (2)
  - Disease recurrence [Recovered/Resolved]
  - Hypernatraemia [Recovered/Resolved]
